FAERS Safety Report 21861631 (Version 2)
Quarter: 2023Q2

REPORT INFORMATION
  Report Type: Spontaneous
  Country: AU (occurrence: AU)
  Receive Date: 20230113
  Receipt Date: 20230626
  Transmission Date: 20230722
  Serious: Yes (Hospitalization)
  Sender: FDA-Public Use
  Company Number: AU-MYLANLABS-2023M1002942

PATIENT
  Age: 32 Year
  Sex: Male

DRUGS (2)
  1. CLOZARIL [Suspect]
     Active Substance: CLOZAPINE
     Indication: Schizophrenia
     Dosage: UNK
     Route: 048
     Dates: start: 20200421, end: 20221226
  2. CLOZARIL [Suspect]
     Active Substance: CLOZAPINE
     Dosage: 300 MILLIGRAM
     Route: 048
     Dates: start: 20200421

REACTIONS (2)
  - Therapy cessation [Unknown]
  - Hospitalisation [Unknown]

NARRATIVE: CASE EVENT DATE: 20221226
